FAERS Safety Report 8780358 (Version 3)
Quarter: 2013Q1

REPORT INFORMATION
  Report Type: Spontaneous
  Country: NO (occurrence: None)
  Receive Date: 20120828
  Receipt Date: 20121213
  Transmission Date: 20140127
  Serious: No
  Sender: FDA-Public Use
  Company Number: THQ2012A07441

PATIENT
  Age: 68 Year
  Sex: Female

DRUGS (12)
  1. LANSOPRAZOLE (LANSOPRAZOLE) [Suspect]
     Indication: GASTROOESOPHAGEAL REFLUX DISEASE
  2. LANSOPRAZOLE (LANSOPRAZOLE) [Suspect]
     Indication: HIATUS HERNIA
  3. PANTOPRAZOLE [Suspect]
     Indication: GASTROOESOPHAGEAL REFLUX DISEASE
  4. PANTOPRAZOLE [Suspect]
     Indication: HIATUS HERNIA
  5. DIAZEPAM [Concomitant]
  6. METFORMIN [Concomitant]
  7. GLIBENCLAMIDE [Concomitant]
  8. METOCLOPRAMIDE [Concomitant]
  9. FLUNITRAZEPAM [Concomitant]
  10. PARACETAMOL [Concomitant]
  11. AMLODIPINE [Concomitant]
  12. LEVOTHYROXINE [Concomitant]

REACTIONS (6)
  - Neuroendocrine tumour [None]
  - Carcinoid tumour of the stomach [None]
  - Dyspepsia [None]
  - Hypergastrinaemia [None]
  - Enterochromaffin cell hyperplasia [None]
  - Helicobacter test positive [None]
